FAERS Safety Report 9242419 (Version 4)
Quarter: 2014Q1

REPORT INFORMATION
  Report Type: Spontaneous
  Country: IT (occurrence: IT)
  Receive Date: 20130419
  Receipt Date: 20140114
  Transmission Date: 20141002
  Serious: Yes (Life-Threatening, Other)
  Sender: FDA-Public Use
  Company Number: IT-ROCHE-1216133

PATIENT
  Age: 72 Year
  Sex: Female

DRUGS (4)
  1. HERCEPTIN [Suspect]
     Indication: BREAST CANCER
     Route: 042
     Dates: start: 20130312, end: 20130312
  2. LETROZOLE [Concomitant]
  3. CARDIOASPIRIN [Concomitant]
  4. ACESISTEM [Concomitant]

REACTIONS (5)
  - Thrombocytopenia [Recovering/Resolving]
  - Petechiae [Recovering/Resolving]
  - Presyncope [Unknown]
  - Epistaxis [Recovering/Resolving]
  - Haemorrhage [Unknown]
